FAERS Safety Report 6368507-8 (Version None)
Quarter: 2009Q3

REPORT INFORMATION
  Report Type: 
  Country: None (occurrence: None)
  Receive Date: 20090922
  Receipt Date: 20090915
  Transmission Date: 20100115
  Serious: Yes (Other)
  Sender: FDA-Public Use
  Company Number: B0590140A

PATIENT
  Sex: Female

DRUGS (2)
  1. FLUTIDE DISKUS [Suspect]
     Indication: ASTHMA
     Dosage: 200MCG TWICE PER DAY
     Route: 055
     Dates: start: 20090810, end: 20090810
  2. UNKNOWN DRUG [Concomitant]
     Route: 065

REACTIONS (4)
  - DRUG ERUPTION [None]
  - DYSPNOEA [None]
  - MALAISE [None]
  - PHARYNGEAL OEDEMA [None]
